FAERS Safety Report 8932134 (Version 2)
Quarter: 2014Q2

REPORT INFORMATION
  Report Type: Spontaneous
  Country: JP (occurrence: JP)
  Receive Date: 20121128
  Receipt Date: 20131018
  Transmission Date: 20141212
  Serious: Yes (Other)
  Sender: FDA-Public Use
  Company Number: JP-PFIZER INC-2012292796

PATIENT
  Age: 67 Year
  Sex: Male

DRUGS (9)
  1. METHYLPREDNISOLONE SODIUM SUCCINATE [Suspect]
     Indication: ANTINEUTROPHIL CYTOPLASMIC ANTIBODY POSITIVE
     Dosage: 500 MG DAILY
     Route: 042
     Dates: start: 200804, end: 200804
  2. METHYLPREDNISOLONE SODIUM SUCCINATE [Suspect]
     Indication: VASCULITIS
  3. PREDNISOLONE [Suspect]
     Indication: ANTINEUTROPHIL CYTOPLASMIC ANTIBODY POSITIVE
     Dosage: 40 MG/DAY (0.7 MG/KG)
     Route: 048
  4. PREDNISOLONE [Suspect]
     Indication: VASCULITIS
     Dosage: 40 MG/DAY (0.8 MG/KG)
     Route: 048
     Dates: start: 200804
  5. PREDNISOLONE [Suspect]
     Dosage: 3 MG/DAY
     Route: 048
  6. PREDNISOLONE [Suspect]
     Dosage: 7.5 MG/DAY
     Route: 048
  7. SMX TMP [Concomitant]
     Indication: ANTIFUNGAL PROPHYLAXIS
     Dosage: 160 MG OF TRIMETHOPRIM AND 800 MG OF SULFAMETHOXAZOLE/WEEK
     Route: 048
  8. SMX TMP [Concomitant]
     Dosage: 160 MG OF TRIMETHOPRIM AND 800 MG OF SULFAMETHOXAZOLE TWICE A DAILY
     Route: 048
  9. AMPHOTERICIN B [Concomitant]
     Indication: ANTIFUNGAL PROPHYLAXIS
     Dosage: 100 MG/ML, 20 X DILUTION
     Route: 048

REACTIONS (2)
  - Nocardiosis [Recovering/Resolving]
  - Meningitis cryptococcal [Recovered/Resolved]
